FAERS Safety Report 12165520 (Version 1)
Quarter: 2016Q1

REPORT INFORMATION
  Report Type: Spontaneous
  Country: US (occurrence: US)
  Receive Date: 20160309
  Receipt Date: 20160309
  Transmission Date: 20160526
  Serious: No
  Sender: FDA-Public Use
  Company Number: US-MIKART, INC.-1048847

PATIENT
  Age: 10 Year

DRUGS (1)
  1. DEXTROAMPHETAMINE SULFATE. [Suspect]
     Active Substance: DEXTROAMPHETAMINE SULFATE
     Route: 048

REACTIONS (3)
  - Drug effect delayed [Unknown]
  - Drug ineffective [Unknown]
  - Malaise [Unknown]
